FAERS Safety Report 20055948 (Version 5)
Quarter: 2023Q2

REPORT INFORMATION
  Report Type: Other
  Country: GB (occurrence: None)
  Receive Date: 20211111
  Receipt Date: 20230516
  Transmission Date: 20230722
  Serious: No
  Sender: FDA-Public Use
  Company Number: GB-ROCHE-2952126

PATIENT
  Age: 36 Year
  Sex: Male

DRUGS (6)
  1. OCRELIZUMAB [Suspect]
     Active Substance: OCRELIZUMAB
     Indication: Relapsing-remitting multiple sclerosis
     Dosage: EVERY 6 MONTHS, DATE DRUG RECEIVED: 12/MAR/2020,
     Route: 042
     Dates: start: 20200227
  2. OCRELIZUMAB [Suspect]
     Active Substance: OCRELIZUMAB
     Dosage: 27/MAY/2021, 26/MAY/2022, 15/SEP/2020, 28/NOV/2022
     Route: 042
     Dates: start: 20211125, end: 20211125
  3. MAGNESIUM [Concomitant]
     Active Substance: MAGNESIUM
     Dosage: MS SYMPTOMATIC TREATMENTS
     Dates: start: 2020, end: 2022
  4. ACETAMINOPHEN [Concomitant]
     Active Substance: ACETAMINOPHEN
  5. IBUPROFEN [Concomitant]
     Active Substance: IBUPROFEN
  6. VITAMIN C [Concomitant]
     Active Substance: ASCORBIC ACID

REACTIONS (2)
  - Suspected COVID-19 [Recovered/Resolved]
  - COVID-19 [Recovered/Resolved]

NARRATIVE: CASE EVENT DATE: 20210908
